FAERS Safety Report 5415584-4 (Version None)
Quarter: 2007Q3

REPORT INFORMATION
  Report Type: 
  Country: None (occurrence: None)
  Receive Date: 20070815
  Receipt Date: 20070809
  Transmission Date: 20080115
  Serious: Yes (Other)
  Sender: FDA-Public Use
  Company Number: CA-BAYER-200713642GDS

PATIENT
  Age: 46 Year
  Sex: Female
  Weight: 61 kg

DRUGS (2)
  1. AVELOX [Suspect]
     Indication: ACUTE SINUSITIS
     Route: 048
     Dates: start: 20070207, end: 20070215
  2. NASONEX [Concomitant]
     Indication: DRUG USE FOR UNKNOWN INDICATION
     Route: 065

REACTIONS (8)
  - ANXIETY [None]
  - DIZZINESS [None]
  - FATIGUE [None]
  - MENSTRUATION IRREGULAR [None]
  - NEURALGIA [None]
  - PAIN [None]
  - TACHYCARDIA [None]
  - TENDON DISORDER [None]
